FAERS Safety Report 11510352 (Version 1)
Quarter: 2015Q3

REPORT INFORMATION
  Report Type: Spontaneous
  Country: US (occurrence: US)
  Receive Date: 20150915
  Receipt Date: 20150915
  Transmission Date: 20151125
  Serious: No
  Sender: FDA-Public Use
  Company Number: US-JNJFOC-20150614022

PATIENT
  Age: 84 Year
  Sex: Male
  Weight: 81.65 kg

DRUGS (2)
  1. TYLENOL EXTRA STRENGTH [Suspect]
     Active Substance: ACETAMINOPHEN
     Route: 048
  2. TYLENOL EXTRA STRENGTH [Suspect]
     Active Substance: ACETAMINOPHEN
     Indication: ARTHRALGIA
     Dosage: PATIENT USED 2 CAPLETS EVERY 3-4 HOURS
     Route: 048
     Dates: end: 20150617

REACTIONS (2)
  - Drug ineffective [Unknown]
  - Drug administration error [Unknown]
